FAERS Safety Report 5025182-2 (Version None)
Quarter: 2006Q2

REPORT INFORMATION
  Report Type: 
  Country: None (occurrence: None)
  Receive Date: 20060613
  Receipt Date: 20060608
  Transmission Date: 20061013
  Serious: Yes (Other)
  Sender: FDA-Public Use
  Company Number: US-GLAXOSMITHKLINE-A0608684A

PATIENT
  Age: 29 Year
  Sex: Female

DRUGS (4)
  1. IMITREX [Suspect]
     Indication: MIGRAINE
     Dosage: 25MG SINGLE DOSE
     Route: 048
     Dates: start: 20050914, end: 20050914
  2. IMITREX [Suspect]
     Dosage: 25MG SINGLE DOSE
     Route: 048
     Dates: start: 20050930, end: 20050930
  3. IMITREX [Suspect]
     Dosage: 25MG SINGLE DOSE
     Route: 048
     Dates: start: 20051014, end: 20051014
  4. IMITREX [Suspect]
     Dosage: 25MG SINGLE DOSE
     Route: 048
     Dates: start: 20051019, end: 20051019

REACTIONS (2)
  - PREMATURE LABOUR [None]
  - PREMATURE RUPTURE OF MEMBRANES [None]
